FAERS Safety Report 21180166 (Version 3)
Quarter: 2022Q3

REPORT INFORMATION
  Report Type: Spontaneous
  Country: CA (occurrence: CA)
  Receive Date: 20220806
  Receipt Date: 20220922
  Transmission Date: 20221027
  Serious: Yes (Other)
  Sender: FDA-Public Use
  Company Number: CA-CELLTRION INC.-2022CA006859

PATIENT

DRUGS (5)
  1. INFLECTRA [Suspect]
     Active Substance: INFLIXIMAB-DYYB
     Indication: Colitis ulcerative
     Dosage: 1130 MG, EVERY 6 WEEKS, (NOT YET STARTED)
     Route: 042
  2. INFLECTRA [Suspect]
     Active Substance: INFLIXIMAB-DYYB
     Dosage: 1130 MG, EVERY 6 WEEKS
     Route: 042
     Dates: start: 20220425
  3. INFLECTRA [Suspect]
     Active Substance: INFLIXIMAB-DYYB
     Dosage: 1130 MG, EVERY 6 WEEKS
     Route: 042
     Dates: start: 20220425, end: 2022
  4. INFLECTRA [Suspect]
     Active Substance: INFLIXIMAB-DYYB
     Dosage: 1130 MG, EVERY 6 WEEKS
     Route: 042
  5. INFLECTRA [Suspect]
     Active Substance: INFLIXIMAB-DYYB
     Dosage: 1130 MG, EVERY 6 WEEKS
     Route: 042
     Dates: start: 20220823

REACTIONS (10)
  - Pathogen resistance [Unknown]
  - Micturition urgency [Not Recovered/Not Resolved]
  - Off label use [Unknown]
  - Off label use [Unknown]
  - Intentional product use issue [Unknown]
  - Intentional product use issue [Not Recovered/Not Resolved]
  - Urinary tract infection [Recovered/Resolved]
  - Pharyngitis [Unknown]
  - Condition aggravated [Not Recovered/Not Resolved]
  - Infection [Not Recovered/Not Resolved]

NARRATIVE: CASE EVENT DATE: 20220101
